FAERS Safety Report 7968890-3 (Version None)
Quarter: 2011Q4

REPORT INFORMATION
  Report Type: 
  Country: None (occurrence: None)
  Receive Date: 20111209
  Receipt Date: 20111201
  Transmission Date: 20120403
  Serious: Yes (Hospitalization, Other)
  Sender: FDA-Public Use
  Company Number: ES-B.I. PHARMACEUTICALS,INC./RIDGEFIELD-2011-EU-00961BY

PATIENT
  Age: 92 Year
  Sex: Female

DRUGS (4)
  1. TELMISARTAN/HYDROCHLOROTHIAZIDE [Suspect]
     Indication: HYPERTENSION
     Dosage: 1 ANZ
     Route: 048
     Dates: start: 20060101, end: 20110207
  2. OMEPRAZOLE [Concomitant]
  3. UNCODEABLE 'UNCLASSIFIABLE' [Concomitant]
     Dates: start: 20060101
  4. IBUPROFEN [Suspect]
     Dosage: 1.8 G
     Route: 048
     Dates: start: 20110124, end: 20110207

REACTIONS (2)
  - RENAL FAILURE ACUTE [None]
  - GASTROINTESTINAL HAEMORRHAGE [None]
